FAERS Safety Report 5165203-X (Version None)
Quarter: 2006Q4

REPORT INFORMATION
  Report Type: 
  Country: None (occurrence: None)
  Receive Date: 20061127
  Receipt Date: 20061113
  Transmission Date: 20070319
  Serious: Yes (Life-Threatening)
  Sender: FDA-Public Use
  Company Number: T200601258

PATIENT
  Age: 83 Year
  Sex: Male
  Weight: 74.5 kg

DRUGS (1)
  1. OPTIRAY 320 [Suspect]
     Indication: COMPUTERISED TOMOGRAM ABDOMEN
     Dosage: 90 MG, SINGLE, INTRAVENOUS
     Route: 042
     Dates: start: 20061030, end: 20061030

REACTIONS (7)
  - ANAPHYLACTIC SHOCK [None]
  - BLOOD PRESSURE DECREASED [None]
  - COLD SWEAT [None]
  - INCONTINENCE [None]
  - RESPIRATORY ARREST [None]
  - SNORING [None]
  - UNRESPONSIVE TO STIMULI [None]
